FAERS Safety Report 19171285 (Version 1)
Quarter: 2021Q2

REPORT INFORMATION
  Report Type: Spontaneous
  Country: TR (occurrence: TR)
  Receive Date: 20210423
  Receipt Date: 20210423
  Transmission Date: 20210717
  Serious: Yes (Other)
  Sender: FDA-Public Use
  Company Number: TR-JNJFOC-20210439961

PATIENT
  Sex: Male

DRUGS (2)
  1. XARELTO [Suspect]
     Active Substance: RIVAROXABAN
     Indication: DEEP VEIN THROMBOSIS
     Dosage: 1 DF, QD
     Route: 048
  2. ACETYLSALICYLIC ACID CARDIO [Concomitant]
     Active Substance: ASPIRIN

REACTIONS (1)
  - Systemic lupus erythematosus [Unknown]
